FAERS Safety Report 15967912 (Version 1)
Quarter: 2019Q1

REPORT INFORMATION
  Report Type: Spontaneous
  Country: PL (occurrence: PL)
  Receive Date: 20190215
  Receipt Date: 20190215
  Transmission Date: 20190418
  Serious: Yes (Death, Life-Threatening, Hospitalization, Other)
  Sender: FDA-Public Use
  Company Number: PHHY2019PL028986

PATIENT
  Age: 76 Year
  Sex: Female

DRUGS (3)
  1. HYDROGEN PEROXIDE. [Concomitant]
     Active Substance: HYDROGEN PEROXIDE
     Indication: PRODUCT USED FOR UNKNOWN INDICATION
     Dosage: RINSE
     Route: 065
  2. CLINDAMYCIN. [Suspect]
     Active Substance: CLINDAMYCIN
     Indication: CLOSTRIDIAL INFECTION
     Dosage: 600 MG, TID
     Route: 042
     Dates: start: 20150417
  3. AMOXICILLIN + CLAVULANATE POTASSIUM [Suspect]
     Active Substance: AMOXICILLIN\CLAVULANATE POTASSIUM
     Indication: CLOSTRIDIAL INFECTION
     Dosage: 1.2 G, TID
     Route: 042
     Dates: start: 20150417

REACTIONS (3)
  - Drug resistance [Unknown]
  - Clostridial infection [Fatal]
  - Drug ineffective [Fatal]

NARRATIVE: CASE EVENT DATE: 20150417
